FAERS Safety Report 13727471 (Version 1)
Quarter: 2017Q3

REPORT INFORMATION
  Report Type: Spontaneous
  Country: US (occurrence: US)
  Receive Date: 20170706
  Receipt Date: 20170706
  Transmission Date: 20171127
  Serious: No
  Sender: FDA-Public Use
  Company Number: US-MEDA-2017060066

PATIENT
  Sex: Male

DRUGS (1)
  1. AEROSPAN [Suspect]
     Active Substance: FLUNISOLIDE
     Dates: start: 2015

REACTIONS (2)
  - Chest pain [Unknown]
  - Cough [Unknown]
